FAERS Safety Report 11072148 (Version 1)
Quarter: 2015Q2

REPORT INFORMATION
  Report Type: Report from Study
  Country: US (occurrence: US)
  Receive Date: 20150428
  Receipt Date: 20150428
  Transmission Date: 20150821
  Serious: Yes (Hospitalization, Other)
  Sender: FDA-Public Use
  Company Number: PHHO2013US003229

PATIENT
  Sex: Male
  Weight: 70.1 kg

DRUGS (2)
  1. AFINITOR [Suspect]
     Active Substance: EVEROLIMUS
     Indication: B-CELL LYMPHOMA
     Dosage: 5 MG, DAILY
     Route: 048
     Dates: start: 20130125
  2. LBH589 [Suspect]
     Active Substance: PANOBINOSTAT
     Indication: B-CELL LYMPHOMA
     Dosage: 20 MG, (DAY 1,3,5,15,17,19)
     Route: 048
     Dates: start: 20130125

REACTIONS (3)
  - Chronic gastritis [Unknown]
  - Haemoglobin decreased [Unknown]
  - Pneumonia aspiration [Recovered/Resolved]

NARRATIVE: CASE EVENT DATE: 20130218
